FAERS Safety Report 4366208-9 (Version None)
Quarter: 2004Q2

REPORT INFORMATION
  Report Type: 
  Country: None (occurrence: None)
  Receive Date: 20040527
  Receipt Date: 20040120
  Transmission Date: 20050107
  Serious: No
  Sender: FDA-Public Use
  Company Number: US-BRISTOL-MYERS SQUIBB COMPANY-12519054

PATIENT
  Age: 50 Year
  Sex: Male

DRUGS (1)
  1. DEFINITY [Suspect]
     Indication: CARDIAC STRESS TEST
     Dosage: 1.3 CC IN 8.7CC OF SALINE ANDMINISTERED VIA DILUTED BOLUS
     Route: 040

REACTIONS (1)
  - BACK PAIN [None]
